FAERS Safety Report 17850857 (Version 1)
Quarter: 2020Q2

REPORT INFORMATION
  Report Type: Spontaneous
  Country: US (occurrence: US)
  Receive Date: 20200602
  Receipt Date: 20200602
  Transmission Date: 20200714
  Serious: Yes (Hospitalization)
  Sender: FDA-Public Use
  Company Number: None

PATIENT
  Sex: Female

DRUGS (22)
  1. BUPROPION, CLONAZEP ODT [Concomitant]
  2. HYDROXYCHLOR [Concomitant]
     Active Substance: HYDROXYCHLOROQUINE
  3. LEFLUNOMIDE. [Concomitant]
     Active Substance: LEFLUNOMIDE
  4. NABUMETONE. [Concomitant]
     Active Substance: NABUMETONE
  5. PREDNISONE. [Concomitant]
     Active Substance: PREDNISONE
  6. BENLYSTA [Suspect]
     Active Substance: BELIMUMAB
     Indication: SYSTEMIC LUPUS ERYTHEMATOSUS
     Dosage: ?          OTHER FREQUENCY:I SYRINGE WEEKLY;?
     Route: 058
     Dates: start: 20191018
  7. ADZENYS XR, ALBUTEROL [Concomitant]
  8. AMILORIDE, BREO ELLIPTA INH [Concomitant]
  9. OXYCODONE [Concomitant]
     Active Substance: OXYCODONE
  10. PANTOPRAZOLE [Concomitant]
     Active Substance: PANTOPRAZOLE
  11. ROSUVASTATIN. [Concomitant]
     Active Substance: ROSUVASTATIN
  12. SLOW-MAG [Concomitant]
     Active Substance: MAGNESIUM CHLORIDE
  13. GABAPENTIN. [Concomitant]
     Active Substance: GABAPENTIN
  14. TRAZODONE [Concomitant]
     Active Substance: TRAZODONE HYDROCHLORIDE
  15. VENLAFAXINE [Concomitant]
     Active Substance: VENLAFAXINE HYDROCHLORIDE
  16. DICYCLOMINE, FOLIC ACID [Concomitant]
  17. NITROFURANTOIN. [Concomitant]
     Active Substance: NITROFURANTOIN
  18. LEVOTHYROXINE. [Concomitant]
     Active Substance: LEVOTHYROXINE
  19. ONDANSETRON [Concomitant]
     Active Substance: ONDANSETRON
  20. RELISTOR [Concomitant]
     Active Substance: METHYLNALTREXONE BROMIDE
  21. TIZANIDINE. [Concomitant]
     Active Substance: TIZANIDINE
  22. SUMATRIPTAN. [Concomitant]
     Active Substance: SUMATRIPTAN

REACTIONS (5)
  - Therapy interrupted [None]
  - Discomfort [None]
  - Condition aggravated [None]
  - Asphyxia [None]
  - Unresponsive to stimuli [None]
